FAERS Safety Report 16357197 (Version 1)
Quarter: 2019Q2

REPORT INFORMATION
  Report Type: Spontaneous
  Country: FR (occurrence: FR)
  Receive Date: 20190527
  Receipt Date: 20190527
  Transmission Date: 20190711
  Serious: Yes (Hospitalization)
  Sender: FDA-Public Use
  Company Number: FR-ACCORD-129275

PATIENT
  Age: 64 Year
  Sex: Male
  Weight: 94 kg

DRUGS (14)
  1. IMUREL [Interacting]
     Active Substance: AZATHIOPRINE SODIUM
     Indication: HEART TRANSPLANT
     Dosage: 50 MG, SCORED TABLET
     Route: 048
     Dates: start: 20140522, end: 20161121
  2. PARACETAMOL [Concomitant]
     Active Substance: ACETAMINOPHEN
  3. CARDENSIEL [Concomitant]
     Active Substance: BISOPROLOL FUMARATE
  4. INEGY [Concomitant]
     Active Substance: EZETIMIBE\SIMVASTATIN
  5. KARDEGIC [Concomitant]
     Active Substance: ASPIRIN DL-LYSINE
  6. INEXIUM [Concomitant]
     Active Substance: ESOMEPRAZOLE
  7. CORTANCYL [Concomitant]
     Active Substance: PREDNISONE
  8. LEVEMIR [Concomitant]
     Active Substance: INSULIN DETEMIR
  9. ALLOPURINOL. [Suspect]
     Active Substance: ALLOPURINOL
     Indication: GOUT
     Route: 048
     Dates: start: 201611, end: 20161121
  10. BETASERC [Concomitant]
     Active Substance: BETAHISTINE
  11. REPAGLINIDE. [Concomitant]
     Active Substance: REPAGLINIDE
  12. EUPRESSYL [Concomitant]
     Active Substance: URAPIDIL
  13. NEORAL [Suspect]
     Active Substance: CYCLOSPORINE
     Indication: HEART TRANSPLANT
     Route: 048
     Dates: end: 20161121
  14. APROVEL [Concomitant]
     Active Substance: IRBESARTAN

REACTIONS (2)
  - Pancytopenia [Recovered/Resolved]
  - Drug interaction [Unknown]

NARRATIVE: CASE EVENT DATE: 201611
